FAERS Safety Report 4644660-9 (Version None)
Quarter: 2005Q2

REPORT INFORMATION
  Report Type: 
  Country: None (occurrence: None)
  Receive Date: 20050422
  Receipt Date: 20050409
  Transmission Date: 20051028
  Serious: Yes (Other)
  Sender: FDA-Public Use
  Company Number: A-US2005-09196

PATIENT
  Age: 42 Year
  Sex: Female
  Weight: 79 kg

DRUGS (9)
  1. TRACLEER [Suspect]
     Indication: PULMONARY HYPERTENSION
     Dosage: SEE IMAGE, ORAL
     Route: 048
     Dates: start: 20040301, end: 20040401
  2. TRACLEER [Suspect]
     Indication: PULMONARY HYPERTENSION
     Dosage: SEE IMAGE, ORAL
     Route: 048
     Dates: start: 20040401, end: 20041101
  3. FLOLAN [Concomitant]
  4. ACETYLSALICYLIC ACID SRT [Concomitant]
  5. COUMADIN [Concomitant]
  6. IRON (IRON) [Concomitant]
  7. POTASSIUM CHLORIDE [Concomitant]
  8. LASIX [Concomitant]
  9. DIGOXIN [Concomitant]

REACTIONS (4)
  - ALANINE AMINOTRANSFERASE INCREASED [None]
  - ASPARTATE AMINOTRANSFERASE INCREASED [None]
  - BLOOD ALKALINE PHOSPHATASE INCREASED [None]
  - DRUG INEFFECTIVE [None]
